FAERS Safety Report 14675400 (Version 1)
Quarter: 2018Q1

REPORT INFORMATION
  Report Type: Report from Study
  Country: US (occurrence: US)
  Receive Date: 20180323
  Receipt Date: 20180323
  Transmission Date: 20180509
  Serious: Yes (Hospitalization, Other)
  Sender: FDA-Public Use
  Company Number: US-BAYER-2018-054054

PATIENT
  Age: 74 Year
  Sex: Female
  Weight: 67.57 kg

DRUGS (3)
  1. UPTRAVI [Suspect]
     Active Substance: SELEXIPAG
     Dosage: UNK
     Dates: end: 2018
  2. OPSUMIT [Concomitant]
     Active Substance: MACITENTAN
     Dosage: UNK
  3. ADEMPAS [Suspect]
     Active Substance: RIOCIGUAT
     Indication: PULMONARY ARTERIAL HYPERTENSION
     Dosage: 0.5 MG, TID
     Route: 048
     Dates: start: 20180129, end: 2018

REACTIONS (2)
  - Hospitalisation [None]
  - Weight decreased [Unknown]

NARRATIVE: CASE EVENT DATE: 2018
